FAERS Safety Report 14083197 (Version 1)
Quarter: 2017Q4

REPORT INFORMATION
  Report Type: Spontaneous
  Country: US (occurrence: US)
  Receive Date: 20171012
  Receipt Date: 20171012
  Transmission Date: 20180321
  Serious: Yes (Other)
  Sender: FDA-Public Use
  Company Number: US-GILEAD-2017-0298378

PATIENT
  Sex: Female

DRUGS (3)
  1. INTERFERON [Concomitant]
     Active Substance: INTERFERON
  2. RIBAVIRIN. [Suspect]
     Active Substance: RIBAVIRIN
     Indication: HEPATITIS C
     Route: 065
  3. HARVONI [Suspect]
     Active Substance: LEDIPASVIR\SOFOSBUVIR
     Indication: HEPATITIS C
     Route: 065

REACTIONS (4)
  - Hepatic cancer [Recovered/Resolved]
  - Drug ineffective [Not Recovered/Not Resolved]
  - Treatment failure [Not Recovered/Not Resolved]
  - Hepatitis C [Not Recovered/Not Resolved]
